FAERS Safety Report 13178564 (Version 1)
Quarter: 2017Q1

REPORT INFORMATION
  Report Type: Spontaneous
  Country: US (occurrence: US)
  Receive Date: 20170201
  Receipt Date: 20170201
  Transmission Date: 20170428
  Serious: Yes (Hospitalization)
  Sender: FDA-Public Use
  Company Number: None

PATIENT
  Age: 61 Year
  Sex: Male
  Weight: 83.7 kg

DRUGS (2)
  1. LOW DOSE ASPIRIN [Concomitant]
     Active Substance: ASPIRIN
  2. LOSARTAN AND HYDROCHLOROTHIAZIDE [Suspect]
     Active Substance: HYDROCHLOROTHIAZIDE\LOSARTAN POTASSIUM
     Indication: HYPERTENSION
     Dosage: ?          QUANTITY:1 TABLET(S);?
     Route: 048
     Dates: start: 20161222, end: 20161223

REACTIONS (8)
  - Fatigue [None]
  - Seizure [None]
  - Flushing [None]
  - Unevaluable event [None]
  - Dizziness [None]
  - Economic problem [None]
  - Dyspnoea [None]
  - Product substitution issue [None]

NARRATIVE: CASE EVENT DATE: 20161223
